FAERS Safety Report 4628547-3 (Version None)
Quarter: 2005Q2

REPORT INFORMATION
  Report Type: 
  Country: None (occurrence: None)
  Receive Date: 20050404
  Receipt Date: 20050317
  Transmission Date: 20051028
  Serious: Yes (Hospitalization)
  Sender: FDA-Public Use
  Company Number: DSA_26178_2005

PATIENT
  Age: 77 Year
  Sex: Female

DRUGS (5)
  1. ENALAPRIL MALEATE AND HYDROCHLOROTHIAZIDE [Suspect]
     Indication: HYPERTENSION
     Dosage: 1 TAB Q DAY PO
     Route: 048
     Dates: end: 20050201
  2. AMLODIPINE BESYLATE [Concomitant]
  3. ASPIRIN [Concomitant]
  4. PINDOLOL [Concomitant]
  5. URSODIOL [Concomitant]

REACTIONS (2)
  - PANCREATIC NECROSIS [None]
  - PANCREATITIS ACUTE [None]
